FAERS Safety Report 7337305-0 (Version None)
Quarter: 2011Q1

REPORT INFORMATION
  Report Type: 
  Country: None (occurrence: None)
  Receive Date: 20110308
  Receipt Date: 20110225
  Transmission Date: 20110831
  Serious: Yes (Hospitalization, Other)
  Sender: FDA-Public Use
  Company Number: US-ELI_LILLY_AND_COMPANY-US201007006946

PATIENT
  Sex: Female

DRUGS (13)
  1. XANAX [Concomitant]
     Dosage: UNK, UNKNOWN
     Route: 065
  2. DIAZEPAM [Concomitant]
     Indication: MUSCLE SPASMS
     Dosage: 5 MG, AS NEEDED
  3. FORTEO [Suspect]
     Indication: OSTEOPOROSIS
     Dosage: 20 UG, DAILY (1/D)
     Route: 065
     Dates: start: 20100709
  4. ANTIVERT [Concomitant]
     Dosage: UNK, AS NEEDED
  5. IMITREX [Concomitant]
     Dosage: 100 MG, AS NEEDED
  6. ZOLOFT [Concomitant]
     Dosage: UNK, UNKNOWN
     Route: 065
  7. CALCIUM WITH VITAMIN D [Concomitant]
     Dosage: UNK, UNKNOWN
     Route: 065
  8. FORTEO [Suspect]
     Dosage: 20 UG, DAILY (1/D)
  9. LORTAB [Concomitant]
  10. ESTRADIOL [Concomitant]
     Dosage: UNK, DAILY (1/D)
  11. EFFEXOR [Concomitant]
     Dosage: 75 MG, DAILY (1/D)
  12. MIRALAX [Concomitant]
     Dosage: UNK, AS NEEDED
  13. PRILOSEC [Concomitant]
     Dosage: 20 MG, DAILY (1/D)

REACTIONS (21)
  - FRACTURED SACRUM [None]
  - BLADDER DILATATION [None]
  - INJECTION SITE ERYTHEMA [None]
  - BACK PAIN [None]
  - FALL [None]
  - URINARY RETENTION [None]
  - BURNING SENSATION [None]
  - INJECTION SITE OEDEMA [None]
  - INJECTION SITE HAEMATOMA [None]
  - MUSCLE SPASMS [None]
  - NEURALGIA [None]
  - MUSCULAR WEAKNESS [None]
  - NERVE COMPRESSION [None]
  - ABDOMINAL PAIN UPPER [None]
  - PAIN IN EXTREMITY [None]
  - ARTHRALGIA [None]
  - HYPOAESTHESIA [None]
  - PARAESTHESIA [None]
  - JOINT SWELLING [None]
  - ASTHENIA [None]
  - INJECTION SITE PAIN [None]
